FAERS Safety Report 16144216 (Version 5)
Quarter: 2019Q2

REPORT INFORMATION
  Report Type: Spontaneous
  Country: GB (occurrence: GB)
  Receive Date: 20190401
  Receipt Date: 20190522
  Transmission Date: 20190711
  Serious: Yes (Life-Threatening, Hospitalization, Other)
  Sender: FDA-Public Use
  Company Number: PHHY2019GB072169

PATIENT
  Age: 7 Year
  Sex: Male

DRUGS (7)
  1. IMATINIB. [Suspect]
     Active Substance: IMATINIB MESYLATE
     Indication: HYPEREOSINOPHILIC SYNDROME
     Route: 065
  2. MEPOLIZUMAB [Suspect]
     Active Substance: MEPOLIZUMAB
     Indication: HYPEREOSINOPHILIC SYNDROME
     Route: 041
  3. METHYLPREDNISOLONE. [Suspect]
     Active Substance: METHYLPREDNISOLONE
     Indication: HYPEREOSINOPHILIC SYNDROME
     Route: 065
  4. METHYLPREDNISOLONE. [Suspect]
     Active Substance: METHYLPREDNISOLONE
     Indication: EOSINOPHILIA
  5. IMATINIB. [Suspect]
     Active Substance: IMATINIB MESYLATE
     Indication: EOSINOPHILIA
  6. RITUXIMAB. [Suspect]
     Active Substance: RITUXIMAB
     Indication: HYPEREOSINOPHILIC SYNDROME
     Route: 065
  7. CYCLOPHOSPHAMIDE. [Suspect]
     Active Substance: CYCLOPHOSPHAMIDE
     Indication: HYPEREOSINOPHILIC SYNDROME
     Route: 065

REACTIONS (7)
  - Condition aggravated [Recovering/Resolving]
  - Drug ineffective [Unknown]
  - Pyrexia [Recovering/Resolving]
  - Dyspnoea [Recovering/Resolving]
  - Hypereosinophilic syndrome [Recovering/Resolving]
  - Eosinophil count increased [Recovering/Resolving]
  - Product use in unapproved indication [Unknown]
